FAERS Safety Report 25466593 (Version 3)
Quarter: 2025Q3

REPORT INFORMATION
  Report Type: Spontaneous
  Country: US (occurrence: US)
  Receive Date: 20250623
  Receipt Date: 20250717
  Transmission Date: 20251020
  Serious: No
  Sender: ROCHE
  Company Number: US-ROCHE-10000310600

PATIENT
  Sex: Female

DRUGS (7)
  1. GAZYVA [Suspect]
     Active Substance: OBINUTUZUMAB
     Indication: Product used for unknown indication
     Route: 065
     Dates: start: 20250609
  2. ANASTROZOLE [Concomitant]
     Active Substance: ANASTROZOLE
  3. ARNUITY ELLIPTA [Concomitant]
     Active Substance: FLUTICASONE FUROATE
  4. TRAZODONE [Concomitant]
     Active Substance: TRAZODONE HYDROCHLORIDE
  5. VITAMIN B6 [Concomitant]
     Active Substance: PYRIDOXINE HYDROCHLORIDE
  6. VITAMIN C [Concomitant]
     Active Substance: ASCORBIC ACID
  7. WELLBUTRIN [Concomitant]
     Active Substance: BUPROPION HYDROCHLORIDE

REACTIONS (2)
  - Infusion related reaction [Unknown]
  - White blood cell count decreased [Unknown]
